FAERS Safety Report 7301552-4 (Version None)
Quarter: 2011Q1

REPORT INFORMATION
  Report Type: 
  Country: None (occurrence: None)
  Receive Date: 20110218
  Receipt Date: 20110210
  Transmission Date: 20110831
  Serious: Yes (Hospitalization, Other)
  Sender: FDA-Public Use
  Company Number: DE-PFIZER INC-2011022000

PATIENT
  Age: 53 Year
  Sex: Female

DRUGS (1)
  1. CELEBREX [Suspect]
     Indication: CALCIFICATION OF MUSCLE
     Dosage: UNK
     Route: 048

REACTIONS (3)
  - CARTILAGE INJURY [None]
  - PULMONARY EMBOLISM [None]
  - THROMBOSIS [None]
